FAERS Safety Report 11324921 (Version 3)
Quarter: 2015Q4

REPORT INFORMATION
  Report Type: Report from Study
  Country: ES (occurrence: ES)
  Receive Date: 20150730
  Receipt Date: 20151001
  Transmission Date: 20160304
  Serious: Yes (Other)
  Sender: FDA-Public Use
  Company Number: ES-CELGENE-ESP-2015075025

PATIENT
  Age: 59 Year
  Sex: Female
  Weight: 63 kg

DRUGS (9)
  1. REVLIMID [Suspect]
     Active Substance: LENALIDOMIDE
     Route: 048
     Dates: end: 20150708
  2. DEXAMETHASONE. [Suspect]
     Active Substance: DEXAMETHASONE
     Indication: PLASMA CELL MYELOMA
     Route: 048
     Dates: start: 20140624, end: 20141220
  3. VELCADE [Suspect]
     Active Substance: BORTEZOMIB
     Route: 058
     Dates: end: 20150708
  4. VELCADE [Suspect]
     Active Substance: BORTEZOMIB
     Indication: PLASMA CELL MYELOMA
     Route: 058
     Dates: start: 20140624, end: 20141216
  5. MELPHALAN [Suspect]
     Active Substance: MELPHALAN
     Indication: PLASMA CELL MYELOMA
     Route: 041
     Dates: start: 20150307, end: 20150307
  6. BUSULFAN [Suspect]
     Active Substance: BUSULFAN
     Indication: PLASMA CELL MYELOMA
     Route: 041
     Dates: start: 20150304, end: 20150306
  7. VALSARTAN. [Concomitant]
     Active Substance: VALSARTAN
     Indication: HYPERTENSION
     Route: 048
  8. REVLIMID [Suspect]
     Active Substance: LENALIDOMIDE
     Indication: PLASMA CELL MYELOMA
     Route: 048
     Dates: start: 20140624, end: 20141229
  9. DEXAMETHASONE. [Suspect]
     Active Substance: DEXAMETHASONE
     Route: 048
     Dates: end: 20150708

REACTIONS (1)
  - Benign soft tissue neoplasm [Recovered/Resolved]

NARRATIVE: CASE EVENT DATE: 20150417
